FAERS Safety Report 11190145 (Version 2)
Quarter: 2015Q3

REPORT INFORMATION
  Report Type: Report from Study
  Country: US (occurrence: US)
  Receive Date: 20150615
  Receipt Date: 20150916
  Transmission Date: 20151125
  Serious: No
  Sender: FDA-Public Use
  Company Number: US-ABBVIE-15P-163-1392512-00

PATIENT
  Age: 40 Year
  Sex: Female

DRUGS (3)
  1. WOMEN^S MULTIVITAMIN (CVS BRAND) [Concomitant]
     Indication: VITAMIN SUPPLEMENTATION
     Route: 048
  2. LUPANETA PACK [Suspect]
     Active Substance: ISOPROPYL ALCOHOL\LEUPROLIDE ACETATE\NORETHINDRONE ACETATE
     Indication: PRODUCT USED FOR UNKNOWN INDICATION
     Route: 048
     Dates: start: 201503
  3. LUPANETA PACK [Suspect]
     Active Substance: ISOPROPYL ALCOHOL\LEUPROLIDE ACETATE\NORETHINDRONE ACETATE
     Indication: ENDOMETRIOSIS
     Route: 065
     Dates: start: 20150301

REACTIONS (2)
  - Hot flush [Not Recovered/Not Resolved]
  - Pelvic pain [Recovering/Resolving]

NARRATIVE: CASE EVENT DATE: 20150308
